FAERS Safety Report 6756008-4 (Version None)
Quarter: 2010Q2

REPORT INFORMATION
  Report Type: 
  Country: None (occurrence: None)
  Receive Date: 20100524
  Receipt Date: 20100329
  Transmission Date: 20101027
  Serious: No
  Sender: FDA-Public Use
  Company Number: 006127

PATIENT
  Sex: Male

DRUGS (3)
  1. CIMZIA [Suspect]
     Indication: CROHN'S DISEASE
     Dosage: (400 MG MONTHLY SUBCUTANEOUS)
     Route: 058
     Dates: start: 20090101
  2. ASACOL [Concomitant]
  3. OMEPRAZOLE [Concomitant]

REACTIONS (3)
  - HEADACHE [None]
  - TINNITUS [None]
  - VISION BLURRED [None]
